FAERS Safety Report 22361854 (Version 6)
Quarter: 2023Q4

REPORT INFORMATION
  Report Type: Report from Study
  Country: CN (occurrence: None)
  Receive Date: 20230524
  Receipt Date: 20231019
  Transmission Date: 20240109
  Serious: Yes (Hospitalization)
  Sender: FDA-Public Use
  Company Number: 2023A114105

PATIENT
  Age: 69 Year
  Sex: Female

DRUGS (80)
  1. DURVALUMAB [Suspect]
     Active Substance: DURVALUMAB
     Indication: Oesophageal squamous cell carcinoma
     Dosage: 1500.0MG ONCE/SINGLE ADMINISTRATION
     Route: 042
     Dates: start: 20230412, end: 20230412
  2. DURVALUMAB [Suspect]
     Active Substance: DURVALUMAB
     Indication: Oesophageal squamous cell carcinoma
     Dosage: 1500.0MG ONCE/SINGLE ADMINISTRATION
     Route: 042
     Dates: start: 20230601, end: 20230601
  3. DURVALUMAB [Suspect]
     Active Substance: DURVALUMAB
     Indication: Oesophageal squamous cell carcinoma
     Dosage: 1500.0MG ONCE/SINGLE ADMINISTRATION
     Route: 042
     Dates: start: 20230629, end: 20230629
  4. DURVALUMAB [Suspect]
     Active Substance: DURVALUMAB
     Indication: Oesophageal squamous cell carcinoma
     Dosage: 1500.0MG ONCE/SINGLE ADMINISTRATION
     Route: 042
     Dates: start: 20230727, end: 20230727
  5. DURVALUMAB [Suspect]
     Active Substance: DURVALUMAB
     Indication: Oesophageal squamous cell carcinoma
     Dosage: 1500.0MG ONCE/SINGLE ADMINISTRATION
     Route: 042
     Dates: start: 20230824, end: 20230824
  6. CISPLATIN [Suspect]
     Active Substance: CISPLATIN
     Indication: Oesophageal squamous cell carcinoma
     Dosage: 30.0MG/M2 ONCE/SINGLE ADMINISTRATION
     Route: 042
     Dates: start: 20230412, end: 20230412
  7. CISPLATIN [Suspect]
     Active Substance: CISPLATIN
     Indication: Oesophageal squamous cell carcinoma
     Dosage: 30.0MG/M2 ONCE/SINGLE ADMINISTRATION
     Route: 042
     Dates: start: 20230421, end: 20230421
  8. CISPLATIN [Suspect]
     Active Substance: CISPLATIN
     Indication: Oesophageal squamous cell carcinoma
     Dosage: 30.0MG/M2 ONCE/SINGLE ADMINISTRATION
     Route: 042
     Dates: start: 20230428, end: 20230428
  9. CISPLATIN [Suspect]
     Active Substance: CISPLATIN
     Indication: Oesophageal squamous cell carcinoma
     Dosage: 30.0MG/M2 ONCE/SINGLE ADMINISTRATION
     Route: 042
     Dates: start: 20230505, end: 20230505
  10. CAPECITABINE [Suspect]
     Active Substance: CAPECITABINE
     Indication: Oesophageal squamous cell carcinoma
     Route: 048
     Dates: start: 20230412, end: 20230412
  11. CAPECITABINE [Suspect]
     Active Substance: CAPECITABINE
     Indication: Oesophageal squamous cell carcinoma
     Route: 048
     Dates: start: 20230413, end: 20230414
  12. CAPECITABINE [Suspect]
     Active Substance: CAPECITABINE
     Indication: Oesophageal squamous cell carcinoma
     Route: 048
     Dates: start: 20230417, end: 20230421
  13. CAPECITABINE [Suspect]
     Active Substance: CAPECITABINE
     Indication: Oesophageal squamous cell carcinoma
     Route: 048
     Dates: start: 20230424, end: 20230428
  14. CAPECITABINE [Suspect]
     Active Substance: CAPECITABINE
     Indication: Oesophageal squamous cell carcinoma
     Route: 048
     Dates: start: 20230502, end: 20230505
  15. CAPECITABINE [Suspect]
     Active Substance: CAPECITABINE
     Indication: Oesophageal squamous cell carcinoma
     Route: 048
     Dates: start: 20230508, end: 20230512
  16. CAPECITABINE [Suspect]
     Active Substance: CAPECITABINE
     Indication: Oesophageal squamous cell carcinoma
     Route: 048
     Dates: start: 20230515, end: 20230515
  17. CAPECITABINE [Suspect]
     Active Substance: CAPECITABINE
     Indication: Oesophageal squamous cell carcinoma
     Route: 048
     Dates: start: 20230516, end: 20230516
  18. IRBESARTAN [Concomitant]
     Active Substance: IRBESARTAN
     Indication: Hypertension
     Dosage: 750.0MG ONCE/SINGLE ADMINISTRATION
     Route: 048
     Dates: start: 2022
  19. GLYCIDIDAZOLE SODIUM FOR INJECTION [Concomitant]
     Indication: Radiosensitisation therapy
     Route: 042
     Dates: start: 20230412, end: 20230516
  20. VITAMINS [Concomitant]
     Active Substance: VITAMINS
     Indication: Vitamin supplementation
     Route: 042
     Dates: start: 20230412, end: 20230414
  21. VITAMINS [Concomitant]
     Active Substance: VITAMINS
     Indication: Vitamin supplementation
     Route: 042
     Dates: start: 20230417, end: 20230424
  22. VITAMINS [Concomitant]
     Active Substance: VITAMINS
     Indication: Vitamin supplementation
     Route: 042
     Dates: start: 20230424, end: 20230428
  23. VITAMINS [Concomitant]
     Active Substance: VITAMINS
     Indication: Vitamin supplementation
     Route: 042
     Dates: start: 20230502, end: 20230505
  24. VITAMINS [Concomitant]
     Active Substance: VITAMINS
     Indication: Vitamin supplementation
     Route: 042
     Dates: start: 20230508
  25. COMPOUND AMINO ACIDS INJECTION18AA-VII [Concomitant]
     Indication: Nutritional supplementation
     Route: 042
     Dates: start: 20230412, end: 20230414
  26. COMPOUND AMINO ACIDS INJECTION18AA-VII [Concomitant]
     Indication: Nutritional supplementation
     Route: 042
     Dates: start: 20230412, end: 20230414
  27. COMPOUND AMINO ACIDS INJECTION18AA-VII [Concomitant]
     Indication: Nutritional supplementation
     Route: 042
     Dates: start: 20230417, end: 20230421
  28. COMPOUND AMINO ACIDS INJECTION18AA-VII [Concomitant]
     Indication: Nutritional supplementation
     Route: 042
     Dates: start: 20230417, end: 20230421
  29. COMPOUND AMINO ACIDS INJECTION18AA-VII [Concomitant]
     Indication: Nutritional supplementation
     Route: 042
     Dates: start: 20230424, end: 20230428
  30. COMPOUND AMINO ACIDS INJECTION18AA-VII [Concomitant]
     Indication: Nutritional supplementation
     Route: 042
     Dates: start: 20230424, end: 20230428
  31. COMPOUND AMINO ACIDS INJECTION18AA-VII [Concomitant]
     Indication: Nutritional supplementation
     Route: 042
     Dates: start: 20230502, end: 20230505
  32. COMPOUND AMINO ACIDS INJECTION18AA-VII [Concomitant]
     Indication: Nutritional supplementation
     Route: 042
     Dates: start: 20230502, end: 20230505
  33. COMPOUND AMINO ACIDS INJECTION18AA-VII [Concomitant]
     Indication: Nutritional supplementation
     Route: 042
     Dates: start: 20230508
  34. COMPOUND AMINO ACIDS INJECTION18AA-VII [Concomitant]
     Indication: Nutritional supplementation
     Route: 042
     Dates: start: 20230508
  35. CONCENTRATE OF TRACE ELEMENTS SOLUTION FOR INFUSION [Concomitant]
     Indication: Supplementation therapy
     Route: 042
     Dates: start: 20230412, end: 20230414
  36. CONCENTRATE OF TRACE ELEMENTS SOLUTION FOR INFUSION [Concomitant]
     Indication: Supplementation therapy
     Route: 042
     Dates: start: 20230417, end: 20230421
  37. CONCENTRATE OF TRACE ELEMENTS SOLUTION FOR INFUSION [Concomitant]
     Indication: Supplementation therapy
     Route: 042
     Dates: start: 20230424, end: 20230428
  38. CONCENTRATE OF TRACE ELEMENTS SOLUTION FOR INFUSION [Concomitant]
     Indication: Supplementation therapy
     Route: 042
     Dates: start: 20230502, end: 20230505
  39. CONCENTRATE OF TRACE ELEMENTS SOLUTION FOR INFUSION [Concomitant]
     Indication: Supplementation therapy
     Route: 042
     Dates: start: 20230508
  40. LANSOPRAZOLE FOR INJECTION [Concomitant]
     Indication: Gastric pH decreased
     Route: 042
     Dates: start: 20230412, end: 20230414
  41. LANSOPRAZOLE FOR INJECTION [Concomitant]
     Indication: Gastric pH decreased
     Route: 042
     Dates: start: 20230417, end: 20230418
  42. MEDICAL RADIATION PROTECTION SPRAY(NO MORE INFORMATION) [Concomitant]
     Indication: Prophylaxis
     Dosage: 4-6 TIMES A DAY
     Route: 061
     Dates: start: 20230412
  43. PALONOSETRON HYDROCHLORIDE [Concomitant]
     Active Substance: PALONOSETRON HYDROCHLORIDE
     Indication: Vomiting
     Dosage: 250.0MG ONCE/SINGLE ADMINISTRATION
     Route: 042
     Dates: start: 20230412, end: 20230412
  44. POVIDONE IODINE SOLUTION [Concomitant]
     Indication: Infection prophylaxis
     Dosage: 110.0ML ONCE/SINGLE ADMINISTRATION
     Route: 061
     Dates: start: 20230412, end: 20230412
  45. POVIDONE IODINE SOLUTION [Concomitant]
     Indication: Infection prophylaxis
     Dosage: 110.0ML ONCE/SINGLE ADMINISTRATION
     Route: 061
     Dates: start: 20230414, end: 20230414
  46. POVIDONE IODINE SOLUTION [Concomitant]
     Indication: Infection prophylaxis
     Dosage: 15.0ML ONCE/SINGLE ADMINISTRATION
     Route: 061
     Dates: start: 20230511, end: 20230511
  47. POVIDONE IODINE SOLUTION [Concomitant]
     Indication: Infection prophylaxis
     Dosage: 110.0ML ONCE/SINGLE ADMINISTRATION
     Route: 061
     Dates: start: 20230601, end: 20230601
  48. LIDOCAINE HYDROCHLORIDE [Concomitant]
     Active Substance: LIDOCAINE HYDROCHLORIDE
     Indication: Local anaesthesia
     Dosage: 100.0MG ONCE/SINGLE ADMINISTRATION
     Route: 061
     Dates: start: 20230412, end: 20230412
  49. AZASETRON HYDROCHLORIDE AND SODIUM CHLORIDE INJECTION [Concomitant]
     Indication: Vomiting
     Route: 042
     Dates: start: 20230413, end: 20230414
  50. AZASETRON HYDROCHLORIDE AND SODIUM CHLORIDE INJECTION [Concomitant]
     Indication: Vomiting
     Route: 042
     Dates: start: 20230417, end: 20230419
  51. AZASETRON HYDROCHLORIDE AND SODIUM CHLORIDE INJECTION [Concomitant]
     Indication: Vomiting
     Route: 042
     Dates: start: 20230426, end: 20230428
  52. AZASETRON HYDROCHLORIDE AND SODIUM CHLORIDE INJECTION [Concomitant]
     Indication: Vomiting
     Route: 042
     Dates: start: 20230502, end: 20230505
  53. AZASETRON HYDROCHLORIDE AND SODIUM CHLORIDE INJECTION [Concomitant]
     Indication: Vomiting
     Route: 042
     Dates: start: 20230508, end: 20230516
  54. INVERT SUGAR AND ELECTROLYTES INJECTION [Concomitant]
     Indication: Electrolyte substitution therapy
     Route: 042
     Dates: start: 20230413, end: 20230414
  55. INVERT SUGAR AND ELECTROLYTES INJECTION [Concomitant]
     Indication: Electrolyte substitution therapy
     Route: 042
     Dates: start: 20230417, end: 20230421
  56. INVERT SUGAR AND ELECTROLYTES INJECTION [Concomitant]
     Indication: Electrolyte substitution therapy
     Route: 042
     Dates: start: 20230424, end: 20230428
  57. INVERT SUGAR AND ELECTROLYTES INJECTION [Concomitant]
     Indication: Electrolyte substitution therapy
     Route: 042
     Dates: start: 20230502, end: 20230505
  58. INVERT SUGAR AND ELECTROLYTES INJECTION [Concomitant]
     Indication: Electrolyte substitution therapy
     Route: 042
     Dates: start: 20230508
  59. LACTULOSE [Concomitant]
     Active Substance: LACTULOSE
     Indication: Constipation
     Route: 048
     Dates: start: 20230417, end: 20230423
  60. LACTULOSE [Concomitant]
     Active Substance: LACTULOSE
     Indication: Constipation
     Route: 048
     Dates: start: 20230521, end: 20230523
  61. LACTULOSE [Concomitant]
     Active Substance: LACTULOSE
     Indication: Constipation
     Route: 048
     Dates: start: 20230601
  62. RANITIDINE HYDROCHLORIDE INJECTION [Concomitant]
     Indication: Gastric pH decreased
     Route: 042
     Dates: start: 20230418, end: 20230421
  63. RANITIDINE HYDROCHLORIDE INJECTION [Concomitant]
     Indication: Gastric pH decreased
     Route: 042
     Dates: start: 20230424, end: 20230428
  64. RANITIDINE HYDROCHLORIDE INJECTION [Concomitant]
     Indication: Gastric pH decreased
     Route: 042
     Dates: start: 20230502, end: 20230505
  65. RANITIDINE HYDROCHLORIDE INJECTION [Concomitant]
     Indication: Gastric pH decreased
     Route: 042
     Dates: start: 20230508
  66. MEGESTROL ACETATE DISPERSIBLE TABLETS [Concomitant]
     Indication: Decreased appetite
     Route: 048
     Dates: start: 20230419
  67. METOCLOPRAMIDEDI HYDROCHLORIDE INJECTION [Concomitant]
     Indication: Vomiting
     Dosage: 10.0MG ONCE/SINGLE ADMINISTRATION
     Route: 042
     Dates: start: 20230421, end: 20230421
  68. DEPROTEINISED CALF BLOOD SERUM INJECTION [Concomitant]
     Indication: Prophylaxis
     Route: 042
     Dates: start: 20230424, end: 20230428
  69. DEPROTEINISED CALF BLOOD SERUM INJECTION [Concomitant]
     Indication: Prophylaxis
     Route: 042
     Dates: start: 20230502, end: 20230505
  70. DEPROTEINISED CALF BLOOD SERUM INJECTION [Concomitant]
     Indication: Prophylaxis
     Route: 042
     Dates: start: 20230508, end: 20230526
  71. BETAMETHASONE SODIUM PHOSPHATE FOR INJECTION [Concomitant]
     Indication: Oedema mucosal
     Route: 042
     Dates: start: 20230426, end: 20230428
  72. BETAMETHASONE SODIUM PHOSPHATE FOR INJECTION [Concomitant]
     Indication: Oedema mucosal
     Route: 042
     Dates: start: 20230502, end: 20230505
  73. BETAMETHASONE SODIUM PHOSPHATE FOR INJECTION [Concomitant]
     Indication: Oedema mucosal
     Route: 042
     Dates: start: 20230508, end: 20230517
  74. KANGFUXIN LIQUID [Concomitant]
     Indication: Prophylaxis
     Route: 042
     Dates: start: 20230426, end: 20230502
  75. KANGFUXIN LIQUID [Concomitant]
     Indication: Prophylaxis
     Route: 048
     Dates: start: 20230505, end: 20230518
  76. KANGFUXIN LIQUID [Concomitant]
     Indication: Prophylaxis
     Route: 048
     Dates: start: 20230524
  77. QIANGLIPIPALU(TCM) (LOQUAT LEAF,POPPY SHELL,HUNDRED PARTS,WHITE FRO... [Concomitant]
     Indication: Cough
     Route: 048
     Dates: start: 20230502, end: 20230505
  78. DALTEPARIN SODIUM LNJECTION [Concomitant]
     Indication: Prophylaxis
     Route: 058
     Dates: start: 20230504, end: 20230505
  79. DALTEPARIN SODIUM LNJECTION [Concomitant]
     Indication: Prophylaxis
     Route: 042
     Dates: start: 20230508, end: 20230510
  80. DALTEPARIN SODIUM LNJECTION [Concomitant]
     Indication: Prophylaxis
     Route: 058
     Dates: start: 20230531

REACTIONS (1)
  - Myelosuppression [Recovered/Resolved]

NARRATIVE: CASE EVENT DATE: 20230510
